FAERS Safety Report 16640974 (Version 1)
Quarter: 2019Q3

REPORT INFORMATION
  Report Type: Spontaneous
  Country: BR (occurrence: BR)
  Receive Date: 20190729
  Receipt Date: 20190729
  Transmission Date: 20191004
  Serious: Yes (Hospitalization, Other)
  Sender: FDA-Public Use
  Company Number: BR-ROCHE-2364268

PATIENT
  Age: 56 Year
  Sex: Male
  Weight: 64.9 kg

DRUGS (1)
  1. ACTILYSE [Suspect]
     Active Substance: ALTEPLASE
     Indication: CEREBROVASCULAR ACCIDENT
     Route: 065
     Dates: start: 20190707

REACTIONS (3)
  - Cerebral ischaemia [Unknown]
  - Nervous system disorder [Unknown]
  - Drug ineffective [Unknown]
